FAERS Safety Report 8726959 (Version 2)
Quarter: 2015Q2

REPORT INFORMATION
  Report Type: Report from Study
  Country: US (occurrence: US)
  Receive Date: 20120816
  Receipt Date: 20150408
  Transmission Date: 20150821
  Serious: Yes (Other)
  Sender: FDA-Public Use
  Company Number: US-ROCHE-1100897

PATIENT
  Sex: Male

DRUGS (10)
  1. MORPHINE [Concomitant]
     Active Substance: MORPHINE
     Route: 042
  2. ACTIVASE [Suspect]
     Active Substance: ALTEPLASE
     Indication: ACUTE MYOCARDIAL INFARCTION
     Route: 042
  3. HEPARIN [Concomitant]
     Active Substance: HEPARIN SODIUM
     Dosage: 1000 UNITS
     Route: 065
  4. TRIDIL [Concomitant]
     Active Substance: NITROGLYCERIN
     Dosage: PER MIN
     Route: 065
  5. NITROGLYCERIN. [Concomitant]
     Active Substance: NITROGLYCERIN
     Route: 060
  6. TRIDIL [Concomitant]
     Active Substance: NITROGLYCERIN
     Route: 065
  7. HEPARIN [Concomitant]
     Active Substance: HEPARIN SODIUM
     Dosage: 5000 UNITS
     Route: 065
  8. ASPIRIN. [Concomitant]
     Active Substance: ASPIRIN
  9. TRIDIL [Concomitant]
     Active Substance: NITROGLYCERIN
     Dosage: PER MINUTE
     Route: 065
  10. TRIDIL [Concomitant]
     Active Substance: NITROGLYCERIN
     Dosage: 50 MG IN 250 UNITS
     Route: 065

REACTIONS (5)
  - Dyspnoea [Unknown]
  - Chest discomfort [Unknown]
  - Nausea [Unknown]
  - Dyspepsia [Unknown]
  - Heart rate decreased [Unknown]
